FAERS Safety Report 9456890 (Version 1)
Quarter: 2013Q3

REPORT INFORMATION
  Report Type: Spontaneous
  Country: US (occurrence: None)
  Receive Date: 20130809
  Receipt Date: 20130809
  Transmission Date: 20140515
  Serious: Yes (Other)
  Sender: FDA-Public Use
  Company Number: UTC-036153

PATIENT
  Age: 43 Year
  Sex: Female
  Weight: 68.63 kg

DRUGS (8)
  1. REMODULIN (INJECTION FOR INFUSION) (TREPROSTINIL SODIUM) [Suspect]
     Indication: PRODUCT USED FOR UNKNOWN INDICATION
     Route: 058
  2. REVATIO [Suspect]
     Indication: PULMONARY ARTERIAL HYPERTENSION
     Dosage: 400 MG (100 MG, 4 IN 1 D)
     Route: 048
  3. SYNTHROID (LEVOTHYROXINE SODIUM) [Concomitant]
  4. ALDACTONE (SPIRONOLACTONE) [Concomitant]
  5. LASIX (FUROSEMIDE) [Concomitant]
  6. TRACLEER (BOSENTAN) [Concomitant]
  7. POTASSIUM CHLORIDE [Concomitant]
  8. SINGULAIR [Concomitant]

REACTIONS (2)
  - Abscess [None]
  - Injection site infection [None]
